FAERS Safety Report 9433780 (Version 1)
Quarter: 2013Q3

REPORT INFORMATION
  Report Type: Spontaneous
  Country: US (occurrence: US)
  Receive Date: 20130731
  Receipt Date: 20130731
  Transmission Date: 20140515
  Serious: Yes (Other)
  Sender: FDA-Public Use
  Company Number: US-SANOFI-AVENTIS-2013SA076803

PATIENT
  Sex: 0

DRUGS (3)
  1. LASIX [Suspect]
     Route: 048
  2. PLAVIX [Suspect]
     Route: 048
  3. ASPIRIN [Suspect]
     Route: 065

REACTIONS (4)
  - Clostridium difficile infection [Recovering/Resolving]
  - Abdominal pain [Recovered/Resolved]
  - Abdominal distension [Recovered/Resolved]
  - Faecal volume increased [Recovering/Resolving]
